FAERS Safety Report 8838902 (Version 1)
Quarter: 2012Q4

REPORT INFORMATION
  Report Type: 
  Country: BR (occurrence: BR)
  Receive Date: 20121015
  Receipt Date: 20121015
  Transmission Date: 20130627
  Serious: Yes (Other)
  Sender: FDA-Public Use
  Company Number: BR-AMGEN-BRASP2012064977

PATIENT
  Age: 47 Year
  Sex: Male
  Weight: 80 kg

DRUGS (4)
  1. ENBREL [Suspect]
     Indication: ANKYLOSING SPONDYLITIS
     Dosage: 50 mg, once weekly
     Route: 058
     Dates: start: 20080616, end: 201205
  2. METHOTREXATE [Concomitant]
     Dosage: 8 tablets per week
  3. CLONAZEPAM [Concomitant]
     Indication: SLEEP DISORDER
     Dosage: UNK UNK, UNK
  4. SERTRALINE HYDROCHLORIDE [Concomitant]
     Indication: DEPRESSION
     Dosage: UNK UNK, UNK

REACTIONS (5)
  - Road traffic accident [Unknown]
  - Lower limb fracture [Unknown]
  - Foot fracture [Unknown]
  - Skin ulcer [Not Recovered/Not Resolved]
  - Surgery [Unknown]
